FAERS Safety Report 13395929 (Version 1)
Quarter: 2017Q2

REPORT INFORMATION
  Report Type: Spontaneous
  Country: US (occurrence: US)
  Receive Date: 20170403
  Receipt Date: 20170403
  Transmission Date: 20170830
  Serious: Yes (Hospitalization)
  Sender: FDA-Public Use
  Company Number: None

PATIENT
  Age: 53 Year
  Sex: Male

DRUGS (15)
  1. TESTOST [Concomitant]
  2. CELECOXIB. [Concomitant]
     Active Substance: CELECOXIB
  3. ALLOPURINOL. [Concomitant]
     Active Substance: ALLOPURINOL
  4. OXYCODONE [Concomitant]
     Active Substance: OXYCODONE
  5. OXANDROLONE. [Concomitant]
     Active Substance: OXANDROLONE
  6. FOLIC ACID. [Concomitant]
     Active Substance: FOLIC ACID
  7. COSENTYX [Suspect]
     Active Substance: SECUKINUMAB
     Indication: ANKYLOSING SPONDYLITIS
     Route: 058
     Dates: start: 20170401
  8. IRBESARTAN. [Concomitant]
     Active Substance: IRBESARTAN
  9. HYDROCHLOROT [Concomitant]
     Active Substance: HYDROCHLOROTHIAZIDE
  10. INSULIN [Concomitant]
     Active Substance: INSULIN NOS
  11. TAMSULOSIN [Concomitant]
     Active Substance: TAMSULOSIN
  12. METHOTREXATE. [Concomitant]
     Active Substance: METHOTREXATE
  13. AMLODIPINE [Concomitant]
     Active Substance: AMLODIPINE BESYLATE
  14. PANTOPRAZOLE [Concomitant]
     Active Substance: PANTOPRAZOLE
  15. SUCRALFATE. [Concomitant]
     Active Substance: SUCRALFATE

REACTIONS (1)
  - Procedural pain [None]
